FAERS Safety Report 5932580-9 (Version None)
Quarter: 2008Q4

REPORT INFORMATION
  Report Type: 
  Country: None (occurrence: None)
  Receive Date: 20081023
  Receipt Date: 20060509
  Transmission Date: 20090506
  Serious: Yes (Hospitalization, Other)
  Sender: FDA-Public Use
  Company Number: 2006AL002066

PATIENT
  Age: 76 Year
  Sex: Female

DRUGS (5)
  1. CITALOPRAM HYDROBROMIDE [Suspect]
     Indication: DEPRESSION
     Dosage: 20 MG;QD;PO
     Route: 048
     Dates: start: 20060410, end: 20060420
  2. BENDROFLUMETHIAZIDE ({NULL}) [Suspect]
     Dosage: 2.5 MG;QD;PO
     Route: 048
     Dates: start: 19961101, end: 20060420
  3. LOSARTAN POTASSIUM [Concomitant]
  4. ACETAMINOPHEN [Concomitant]
  5. IBULEVE [Concomitant]

REACTIONS (5)
  - BLOOD POTASSIUM DECREASED [None]
  - BLOOD SODIUM DECREASED [None]
  - CONFUSIONAL STATE [None]
  - ELECTROLYTE IMBALANCE [None]
  - URINARY TRACT INFECTION [None]
